FAERS Safety Report 10268969 (Version 1)
Quarter: 2014Q2

REPORT INFORMATION
  Report Type: Spontaneous
  Country: GB (occurrence: GB)
  Receive Date: 20140630
  Receipt Date: 20140630
  Transmission Date: 20141212
  Serious: Yes (Other)
  Sender: FDA-Public Use
  Company Number: GB-WATSON-2014-13874

PATIENT
  Age: 17 Year
  Sex: Male
  Weight: 70 kg

DRUGS (2)
  1. RISPERIDONE [Suspect]
     Indication: ACUTE PSYCHOSIS
     Dosage: 2 MG, BID
     Route: 048
  2. RISPERIDONE [Suspect]
     Indication: HALLUCINATION, VISUAL
     Dosage: 1 MG, BID
     Route: 048

REACTIONS (1)
  - Dyskinesia [Unknown]
